FAERS Safety Report 25087556 (Version 2)
Quarter: 2025Q1

REPORT INFORMATION
  Report Type: Spontaneous
  Country: US (occurrence: US)
  Receive Date: 20250318
  Receipt Date: 20250331
  Transmission Date: 20250409
  Serious: No
  Sender: BAUSCH AND LOMB
  Company Number: US-BAUSCHBL-2025BNL004370

PATIENT
  Age: 35 Year
  Sex: Female

DRUGS (1)
  1. XIIDRA [Suspect]
     Active Substance: LIFITEGRAST
     Indication: Dry eye
     Dosage: ALMOST A WEEK
     Route: 047

REACTIONS (3)
  - Eye irritation [Recovered/Resolved]
  - Vision blurred [Unknown]
  - Therapeutic product effect incomplete [Unknown]
